FAERS Safety Report 9348844 (Version 1)
Quarter: 2013Q2

REPORT INFORMATION
  Report Type: Spontaneous
  Country: US (occurrence: US)
  Receive Date: 20130614
  Receipt Date: 20130614
  Transmission Date: 20140414
  Serious: No
  Sender: FDA-Public Use
  Company Number: US-ASTRAZENECA-2013SE40894

PATIENT
  Sex: Female

DRUGS (2)
  1. NEXIUM [Suspect]
     Route: 048
  2. OMEPRAZOLE [Suspect]
     Route: 048

REACTIONS (8)
  - Condition aggravated [Unknown]
  - Muscle spasms [Unknown]
  - Abdominal distension [Unknown]
  - Dyspepsia [Unknown]
  - Foreign body [Unknown]
  - Dysphagia [Unknown]
  - Drug dose omission [Unknown]
  - Drug ineffective [Unknown]
